FAERS Safety Report 16205336 (Version 2)
Quarter: 2019Q2

REPORT INFORMATION
  Report Type: Report from Study
  Country: FR (occurrence: FR)
  Receive Date: 20190417
  Receipt Date: 20190607
  Transmission Date: 20190711
  Serious: Yes (Hospitalization)
  Sender: FDA-Public Use
  Company Number: FR-AMGEN-FRANI2019059501

PATIENT
  Age: 28 Year
  Sex: Female
  Weight: 85 kg

DRUGS (24)
  1. CICLOSPORIN [Suspect]
     Active Substance: CYCLOSPORINE
     Dosage: 50 MILLIGRAM, BID
     Route: 048
     Dates: start: 20141112, end: 20150211
  2. ACTIFED ALLERGIE [Concomitant]
     Active Substance: CETIRIZINE HYDROCHLORIDE
     Dosage: UNK
     Dates: start: 20170704, end: 201708
  3. FOLIC ACID. [Concomitant]
     Active Substance: FOLIC ACID
     Dosage: UNK
     Dates: start: 20171002, end: 201801
  4. DOLIPRANE [Concomitant]
     Active Substance: ACETAMINOPHEN
     Dosage: UNK
     Dates: start: 20170704
  5. METHOTREXATE SODIUM. [Suspect]
     Active Substance: METHOTREXATE SODIUM
     Dosage: 25 MILLIGRAM, QWK
     Route: 048
     Dates: start: 201704, end: 20170510
  6. CICLOSPORIN [Suspect]
     Active Substance: CYCLOSPORINE
     Indication: PSORIASIS
     Dosage: 75 MILLIGRAM, BID
     Route: 048
     Dates: start: 20131120, end: 20140514
  7. CICLOSPORIN [Suspect]
     Active Substance: CYCLOSPORINE
     Dosage: 50 MILLIGRAM, BID
     Route: 048
     Dates: start: 20140514, end: 201409
  8. REMICADE [Suspect]
     Active Substance: INFLIXIMAB
     Indication: PSORIASIS
     Dosage: 425 MG, EVERY 2 WEEKS
     Route: 042
     Dates: start: 20170918, end: 20171002
  9. FLAMMAZINE [Concomitant]
     Active Substance: SILVER SULFADIAZINE
     Dosage: UNK
     Dates: start: 20141112
  10. NERISONE GRAS [Concomitant]
     Dosage: UNK
     Dates: start: 20170918, end: 201711
  11. ETANERCEPT [Suspect]
     Active Substance: ETANERCEPT
     Indication: PSORIASIS
     Dosage: 50 MILLIGRAM, QWK
     Route: 058
     Dates: start: 20170710, end: 20170918
  12. REMICADE [Suspect]
     Active Substance: INFLIXIMAB
     Dosage: 425 MG, EVERY 6 WEEKS
     Route: 042
     Dates: start: 20171030, end: 20171211
  13. REMICADE [Suspect]
     Active Substance: INFLIXIMAB
     Dosage: 425 MG, EVERY 8 WEEKS
     Route: 042
     Dates: start: 20171211, end: 20180205
  14. REMICADE [Suspect]
     Active Substance: INFLIXIMAB
     Dosage: 425 MILLIGRAM, Q7WK
     Route: 042
     Dates: start: 20180205, end: 20180326
  15. METHOTREXATE SODIUM. [Suspect]
     Active Substance: METHOTREXATE SODIUM
     Indication: PSORIASIS
     Dosage: 15 MILLIGRAM, QWK
     Route: 065
     Dates: start: 20150211, end: 20170403
  16. CICLOSPORIN [Suspect]
     Active Substance: CYCLOSPORINE
     Dosage: 100 MILLIGRAM, BID
     Route: 048
     Dates: start: 20180430, end: 20181109
  17. CICLOSPORIN [Suspect]
     Active Substance: CYCLOSPORINE
     Dosage: 125 MILLIGRAM, BID
     Route: 048
     Dates: start: 20181109
  18. DIPROSONE [Concomitant]
     Active Substance: BETAMETHASONE DIPROPIONATE
     Dosage: UNK
     Dates: start: 20140514, end: 201902
  19. CLARELUX [Concomitant]
     Active Substance: CLOBETASOL PROPIONATE
     Dosage: UNK
     Dates: start: 20141112
  20. DIPROLENE [Concomitant]
     Active Substance: BETAMETHASONE DIPROPIONATE
     Dosage: UNK
     Dates: start: 20170704, end: 201709
  21. REMICADE [Suspect]
     Active Substance: INFLIXIMAB
     Dosage: 425 MG, EVERY 4 WEEKS
     Route: 042
     Dates: start: 20171002, end: 20171030
  22. METHOTREXATE SODIUM. [Suspect]
     Active Substance: METHOTREXATE SODIUM
     Dosage: 20 MILLIGRAM, QWK
     Route: 048
     Dates: start: 20170403, end: 201704
  23. DERMOVAL [BETAMETHASONE] [Concomitant]
     Active Substance: BETAMETHASONE
     Dosage: UNK
     Dates: start: 20150211
  24. DIPROSALIC [Concomitant]
     Active Substance: BETAMETHASONE DIPROPIONATE
     Dosage: UNK
     Dates: start: 20170704

REACTIONS (2)
  - Alopecia universalis [Recovering/Resolving]
  - Rash [Recovered/Resolved]

NARRATIVE: CASE EVENT DATE: 20170626
